FAERS Safety Report 9470234 (Version 1)
Quarter: 2013Q3

REPORT INFORMATION
  Report Type: Spontaneous
  Country: US (occurrence: US)
  Receive Date: 20130822
  Receipt Date: 20130822
  Transmission Date: 20140515
  Serious: Yes (Hospitalization)
  Sender: FDA-Public Use
  Company Number: US-SANOFI-AVENTIS-2013SA037137

PATIENT
  Age: 57 Year
  Sex: Male
  Weight: 113.39 kg

DRUGS (26)
  1. ASPIRIN [Concomitant]
     Route: 048
     Dates: start: 20130313, end: 20130314
  2. ATROPINE [Concomitant]
     Indication: BRADYCARDIA
     Dosage: DOSE: 0.5 - 1 MG
     Route: 042
     Dates: start: 20130312
  3. DEXTROSE [Concomitant]
     Indication: HYPOGLYCAEMIA
     Dosage: DOSE: 12.5 G= 25 ML
     Route: 042
     Dates: start: 20130312
  4. DOFETILIDE [Concomitant]
     Route: 048
     Dates: start: 20130312, end: 20130314
  5. GLUCAGON [Concomitant]
     Indication: HYPOGLYCAEMIA
     Dosage: 1 MG = 1 SOLR
     Route: 030
     Dates: start: 20130312
  6. GLUCOSE [Concomitant]
     Indication: HYPOGLYCAEMIA
     Route: 048
     Dates: start: 20130312
  7. HYDROCODONE [Concomitant]
     Indication: PAIN
     Dosage: DOSE: 1 TABLET, FREQUENCY: Q4N PRN
     Route: 048
     Dates: start: 20130312, end: 20130313
  8. INFLUENZA VACCINE [Concomitant]
     Dosage: 0.5 ML SUSPENSION
     Route: 030
     Dates: start: 20130314, end: 20130314
  9. INSULIN HUMAN REGULAR [Concomitant]
     Dosage: 2-12 UNITS = 0.02-0.12 ML SOL, ROUTE- SUBCUTANIOUS, FORM - ACHS
     Dates: start: 20130312, end: 20130313
  10. ISOSORBIDE MONONITRATE [Concomitant]
     Dosage: 30 MG= 1 TB24
     Route: 048
     Dates: start: 20130312, end: 20130314
  11. LORAZEPAM [Concomitant]
     Dosage: 0.5 MG= 1 TAB
     Route: 048
     Dates: start: 20130312, end: 20130314
  12. METFORMIN [Concomitant]
     Dosage: 500 MG = 1 TB24, ROUTE- OPM
     Route: 048
     Dates: start: 20130312, end: 20130313
  13. SODIUM CHLORIDE [Concomitant]
     Indication: FLUSHING
     Dosage: 0.5-50 ML SYRG
     Route: 042
     Dates: start: 20130312
  14. DILANTIN /AUS/ [Concomitant]
     Dosage: 200 MG= 2 X 100 MG CAP
     Route: 048
     Dates: start: 20130312, end: 20130312
  15. DILANTIN /AUS/ [Concomitant]
     Dosage: 300MG= 3 X 100 MG CAP
     Route: 048
     Dates: start: 20130313, end: 20130314
  16. DILANTIN /AUS/ [Concomitant]
     Dosage: 200 MG= 2 X 100 MG CAP, IN THE A.M.
     Route: 048
     Dates: start: 20130313, end: 20130314
  17. RIVAROXABAN [Concomitant]
     Dosage: FREQUENCY- ACSUPPER
     Route: 048
     Dates: start: 20130312, end: 20130313
  18. VICODIN [Concomitant]
     Indication: PAIN
  19. CRESTOR [Concomitant]
  20. DILTIAZEM [Concomitant]
  21. PROPAFENONE [Concomitant]
  22. GLYCERYL TRINITRATE [Concomitant]
  23. LUNESTA [Concomitant]
  24. FLECAINIDE [Concomitant]
  25. MULTAQ [Suspect]
  26. ACETAMINOPHEN [Concomitant]
     Indication: PAIN
     Dosage: DOSE: (2*325 MG TABLET)
     Route: 048
     Dates: start: 20130312, end: 20130313

REACTIONS (5)
  - Atrial fibrillation [Unknown]
  - Drug ineffective [Unknown]
  - Palpitations [Unknown]
  - Malaise [Unknown]
  - Fatigue [Unknown]
